FAERS Safety Report 5343538-5 (Version None)
Quarter: 2007Q2

REPORT INFORMATION
  Report Type: 
  Country: None (occurrence: None)
  Receive Date: 20070604
  Receipt Date: 20070531
  Transmission Date: 20071010
  Serious: Yes (Life-Threatening)
  Sender: FDA-Public Use
  Company Number: PHNR2007AU01163

PATIENT
  Age: 32 Year
  Sex: Male

DRUGS (2)
  1. ARIPIPRAZOLE [Concomitant]
     Indication: SCHIZOPHRENIA
     Dosage: 20MG
     Dates: start: 20060601
  2. CLOZARIL [Suspect]
     Indication: SCHIZOPHRENIA
     Dosage: 12.5-400MG
     Route: 048
     Dates: start: 20050912, end: 20070529

REACTIONS (8)
  - BLOOD AMYLASE INCREASED [None]
  - BLOOD GLUCOSE INCREASED [None]
  - HYPERGLYCAEMIC HYPEROSMOLAR NONKETOTIC SYNDROME [None]
  - HYPOKALAEMIA [None]
  - MALAISE [None]
  - POLYDIPSIA [None]
  - RENAL FAILURE ACUTE [None]
  - SUPRAVENTRICULAR TACHYCARDIA [None]
